FAERS Safety Report 7423209-1 (Version None)
Quarter: 2011Q2

REPORT INFORMATION
  Report Type: 
  Country: None (occurrence: None)
  Receive Date: 20110419
  Receipt Date: 20101118
  Transmission Date: 20111010
  Serious: Yes (Hospitalization, Other)
  Sender: FDA-Public Use
  Company Number: US-BAYER-201033394NA

PATIENT
  Age: 49 Year
  Sex: Female
  Weight: 88.889 kg

DRUGS (4)
  1. SINGULAIR [Concomitant]
     Dosage: UNK
     Route: 048
  2. PROVIGIL [Concomitant]
     Dosage: UNK
     Route: 048
  3. YASMIN [Suspect]
     Indication: OVARIAN CYST
     Dosage: UNK UNK, UNK
     Route: 048
     Dates: start: 20070214, end: 20070314
  4. VYTORIN [Concomitant]
     Route: 048

REACTIONS (3)
  - CELLULITIS [None]
  - ABSCESS [None]
  - DEEP VEIN THROMBOSIS [None]
